FAERS Safety Report 9106769 (Version 2)
Quarter: 2013Q1

REPORT INFORMATION
  Report Type: Spontaneous
  Country: US (occurrence: US)
  Receive Date: 20130221
  Receipt Date: 20130225
  Transmission Date: 20140127
  Serious: Yes (Other)
  Sender: FDA-Public Use
  Company Number: US-BAYER-2013-021057

PATIENT
  Age: 73 Year
  Sex: Male
  Weight: 59 kg

DRUGS (2)
  1. NEO-SYNEPHRINE [Suspect]
     Indication: NASAL CONGESTION
     Dosage: 4-5 DOSES
     Route: 045
     Dates: start: 20130212
  2. NASAL [Concomitant]
     Dosage: UNK
     Dates: start: 20120212

REACTIONS (7)
  - Productive cough [Recovered/Resolved]
  - Incorrect dose administered [None]
  - Headache [None]
  - Drug ineffective [None]
  - Influenza [None]
  - Bronchitis [None]
  - Rash [None]
